FAERS Safety Report 7906707-3 (Version None)
Quarter: 2011Q4

REPORT INFORMATION
  Report Type: 
  Country: None (occurrence: None)
  Receive Date: 20111110
  Receipt Date: 20111101
  Transmission Date: 20120403
  Serious: Yes (Other)
  Sender: FDA-Public Use
  Company Number: JM-JNJFOC-20110909668

PATIENT
  Age: 29 Year
  Sex: Male

DRUGS (4)
  1. INVEGA [Suspect]
     Route: 048
  2. INVEGA [Suspect]
     Indication: PSYCHOTIC DISORDER
     Route: 048
  3. INVEGA [Suspect]
     Route: 048
  4. INVEGA [Suspect]
     Route: 048

REACTIONS (1)
  - TOURETTE'S DISORDER [None]
